FAERS Safety Report 18905377 (Version 57)
Quarter: 2022Q2

REPORT INFORMATION
  Report Type: Report from Study
  Country: MX (occurrence: MX)
  Receive Date: 20210217
  Receipt Date: 20220623
  Transmission Date: 20220720
  Serious: Yes (Other)
  Sender: FDA-Public Use
  Company Number: MX-TAKEDA-MX202005864

PATIENT
  Sex: Male
  Weight: 32 kg

DRUGS (9)
  1. IDURSULFASE [Suspect]
     Active Substance: IDURSULFASE
     Indication: Mucopolysaccharidosis II
     Dosage: 12 MILLIGRAM (2 VIALS), 1/WEEK
     Route: 042
     Dates: start: 20130618
  2. IDURSULFASE [Suspect]
     Active Substance: IDURSULFASE
     Dosage: 1.25 UNK, 1/WEEK
     Route: 042
  3. RISPERIDONE [Concomitant]
     Active Substance: RISPERIDONE
     Indication: Mucopolysaccharidosis II
     Dosage: 2 MILLIGRAM, Q12H
     Route: 065
     Dates: start: 2015
  4. RISPERIDONE [Concomitant]
     Active Substance: RISPERIDONE
     Dosage: 2 MILLIGRAM, Q12H
     Dates: start: 2018
  5. CANNABIS SATIVA SUBSP. INDICA TOP [Concomitant]
     Active Substance: CANNABIS SATIVA SUBSP. INDICA TOP
     Dosage: 5 GTT DROPS, TID
     Route: 065
     Dates: start: 2018
  6. CANNABIS SATIVA SUBSP. INDICA TOP [Concomitant]
     Active Substance: CANNABIS SATIVA SUBSP. INDICA TOP
     Dosage: 20 GTT DROPS, QD
     Route: 065
     Dates: start: 2018
  7. CANNABIS SATIVA SUBSP. INDICA TOP [Concomitant]
     Active Substance: CANNABIS SATIVA SUBSP. INDICA TOP
     Dosage: 10 GTT DROPS, QD
     Route: 065
     Dates: start: 2018
  8. CANNABIS SATIVA SUBSP. INDICA TOP [Concomitant]
     Active Substance: CANNABIS SATIVA SUBSP. INDICA TOP
     Dosage: 20 GTT DROPS, QD
     Route: 065
     Dates: start: 2018
  9. LORATADINE [Concomitant]
     Active Substance: LORATADINE
     Dosage: 3.5 MILLILITER, 1/WEEK
     Dates: start: 2013

REACTIONS (10)
  - Oesophagogastric fundoplasty [Unknown]
  - Gastrostomy [Unknown]
  - Gastric infection [Recovered/Resolved]
  - Suspected COVID-19 [Recovering/Resolving]
  - Therapy interrupted [Not Recovered/Not Resolved]
  - Fear of disease [Not Recovered/Not Resolved]
  - Cough [Not Recovered/Not Resolved]
  - Diarrhoea [Not Recovered/Not Resolved]
  - Product dose omission issue [Unknown]
  - Inappropriate schedule of product administration [Unknown]

NARRATIVE: CASE EVENT DATE: 20180101
